FAERS Safety Report 4356308-1 (Version None)
Quarter: 2004Q2

REPORT INFORMATION
  Report Type: 
  Country: None (occurrence: None)
  Receive Date: 20040510
  Receipt Date: 20040510
  Transmission Date: 20050107
  Serious: Yes (Life-Threatening)
  Sender: FDA-Public Use
  Company Number: None

PATIENT
  Age: 27 Year
  Sex: Male
  Weight: 192 kg

DRUGS (2)
  1. ZYPREXA [Suspect]
     Indication: SCHIZOPHRENIA
     Dosage: 30 MG PO
     Route: 048
     Dates: start: 20031223, end: 20040119
  2. DEPAKOTE [Concomitant]

REACTIONS (1)
  - BLOOD GLUCOSE INCREASED [None]
